FAERS Safety Report 4448997-8 (Version None)
Quarter: 2004Q3

REPORT INFORMATION
  Report Type: 
  Country: None (occurrence: None)
  Receive Date: 20040913
  Receipt Date: 20040825
  Transmission Date: 20050211
  Serious: Yes (Hospitalization)
  Sender: FDA-Public Use
  Company Number: 202417

PATIENT
  Age: 56 Year
  Sex: Female
  Weight: 90.7194 kg

DRUGS (10)
  1. AVONEX [Suspect]
     Indication: MULTIPLE SCLEROSIS
     Dates: start: 19970101, end: 20030801
  2. AVONEX [Suspect]
     Indication: MULTIPLE SCLEROSIS
     Dosage: 30 MCG QW IM
     Route: 030
     Dates: start: 20030801
  3. ANTI-SPASMODIC (NOS) [Concomitant]
  4. RANITIDINE [Concomitant]
  5. NEXIUM [Concomitant]
  6. PROZAC [Concomitant]
  7. ZANTAC [Concomitant]
  8. CELEBREX [Concomitant]
  9. ZANAFLEX [Concomitant]
  10. HYDROCHLOROTHIAZIDE [Concomitant]

REACTIONS (6)
  - BLOOD PRESSURE INCREASED [None]
  - CERVICOBRACHIAL SYNDROME [None]
  - INTERVERTEBRAL DISC PROTRUSION [None]
  - MULTIPLE SCLEROSIS [None]
  - PHARYNGOLARYNGEAL PAIN [None]
  - ROAD TRAFFIC ACCIDENT [None]
